FAERS Safety Report 8758831 (Version 2)
Quarter: 2012Q4

REPORT INFORMATION
  Report Type: Spontaneous
  Country: JP (occurrence: None)
  Receive Date: 20120814
  Receipt Date: 20121003
  Transmission Date: 20130627
  Serious: Yes (Hospitalization)
  Sender: FDA-Public Use
  Company Number: 2012S1000870

PATIENT
  Age: 75 Year
  Sex: Male
  Weight: 63 kg

DRUGS (22)
  1. LIVALO [Suspect]
     Indication: DYSLIPIDAEMIA
     Route: 048
     Dates: start: 20120606, end: 20120710
  2. VALERIN [Concomitant]
  3. FOSAMAC [Concomitant]
  4. ELDECALCITOL [Concomitant]
  5. BAYASPIRIN [Concomitant]
  6. PREDONINE [Concomitant]
  7. MAGNESIUM OXIDE [Concomitant]
  8. SELBEX [Concomitant]
  9. IPD [Concomitant]
  10. TAKEPRON [Concomitant]
  11. GASMOTIN [Concomitant]
  12. MEQUITAZINE [Concomitant]
  13. AMLODIN [Concomitant]
  14. TEGRETOL [Concomitant]
  15. COLICOOL [Concomitant]
  16. LOXOMARIN [Concomitant]
  17. SOLANAX [Concomitant]
  18. SEPAZON [Concomitant]
  19. HIRNAMIN [Concomitant]
  20. RISPERDAL [Concomitant]
  21. SEROQUEL [Concomitant]
  22. TRIPHEDINON [Concomitant]

REACTIONS (1)
  - Blood creatine phosphokinase increased [None]
